FAERS Safety Report 6436771-2 (Version None)
Quarter: 2009Q4

REPORT INFORMATION
  Report Type: 
  Country: None (occurrence: None)
  Receive Date: 20091109
  Receipt Date: 20091023
  Transmission Date: 20100525
  Serious: Yes (Hospitalization)
  Sender: FDA-Public Use
  Company Number: 2009002696

PATIENT
  Age: 47 Year
  Sex: Male
  Weight: 70.3075 kg

DRUGS (15)
  1. ERLOTINIB HYDROCHLORIDE [Suspect]
     Indication: NON-SMALL CELL LUNG CANCER
     Dosage: 150 MG, QD, ORAL
     Route: 048
     Dates: start: 20090504, end: 20090831
  2. ARQ 197 VS. PLACEBO [Suspect]
     Indication: NON-SMALL CELL LUNG CANCER
     Dosage: 720 MG, QD, ORAL
     Route: 048
     Dates: start: 20090504, end: 20090531
  3. AMIODARONE HCL [Concomitant]
  4. TOPROL-XL [Concomitant]
  5. ARANESP [Concomitant]
  6. ZOMETA [Concomitant]
  7. NORCO (VICODON) [Concomitant]
  8. IMODIUM [Concomitant]
  9. SENNA (SENNA) [Concomitant]
  10. TYLENOL [Concomitant]
  11. ROBAXIN [Concomitant]
  12. ACETAMINOPHEN [Concomitant]
  13. HYDROCODONE (HYDROCODONE) [Concomitant]
  14. TRAMADOL HCL [Concomitant]
  15. ASPIRIN [Concomitant]

REACTIONS (11)
  - ANAEMIA [None]
  - ATRIAL FIBRILLATION [None]
  - BLOOD PRESSURE DIASTOLIC DECREASED [None]
  - DIARRHOEA [None]
  - FATIGUE [None]
  - FEBRILE NEUTROPENIA [None]
  - GASTRIC ULCER [None]
  - OESOPHAGEAL ULCER [None]
  - RADIATION OESOPHAGITIS [None]
  - RASH [None]
  - SINUS BRADYCARDIA [None]
